FAERS Safety Report 6231206-7 (Version None)
Quarter: 2009Q2

REPORT INFORMATION
  Report Type: 
  Country: None (occurrence: None)
  Receive Date: 20090616
  Receipt Date: 20090609
  Transmission Date: 20091009
  Serious: Yes (Other)
  Sender: FDA-Public Use
  Company Number: SE-AVENTIS-200915950GDDC

PATIENT
  Sex: Female

DRUGS (1)
  1. FLAGYL [Suspect]
     Dates: end: 20080705

REACTIONS (1)
  - GUILLAIN-BARRE SYNDROME [None]
